FAERS Safety Report 10845833 (Version 1)
Quarter: 2015Q1

REPORT INFORMATION
  Report Type: Spontaneous
  Country: US (occurrence: US)
  Receive Date: 20150220
  Receipt Date: 20150220
  Transmission Date: 20150721
  Serious: No
  Sender: FDA-Public Use
  Company Number: US-ABBVIE-14P-163-1314308-00

PATIENT

DRUGS (1)
  1. HUMIRA [Suspect]
     Active Substance: ADALIMUMAB
     Indication: PRODUCT USED FOR UNKNOWN INDICATION
     Route: 065
     Dates: start: 201401

REACTIONS (20)
  - Musculoskeletal stiffness [Unknown]
  - Headache [Unknown]
  - Malaise [Unknown]
  - Ear pain [Unknown]
  - Dyspepsia [Unknown]
  - Asthenia [Unknown]
  - Joint crepitation [Unknown]
  - Blepharospasm [Unknown]
  - Neck pain [Unknown]
  - Tonsillitis [Unknown]
  - Cough [Unknown]
  - Arthralgia [Unknown]
  - Musculoskeletal chest pain [Unknown]
  - Psoriasis [Unknown]
  - Eye pain [Unknown]
  - Eructation [Unknown]
  - Muscle spasms [Unknown]
  - Vomiting [Unknown]
  - Palpitations [Unknown]
  - Heart rate irregular [Unknown]

NARRATIVE: CASE EVENT DATE: 2014
